FAERS Safety Report 20499072 (Version 2)
Quarter: 2022Q1

REPORT INFORMATION
  Report Type: Spontaneous
  Country: US (occurrence: US)
  Receive Date: 20220222
  Receipt Date: 20220316
  Transmission Date: 20220423
  Serious: No
  Sender: FDA-Public Use
  Company Number: US-SA-SAC20220215001702

PATIENT
  Sex: Female

DRUGS (15)
  1. AUBAGIO [Suspect]
     Active Substance: TERIFLUNOMIDE
     Indication: Relapsing-remitting multiple sclerosis
     Dosage: 14 MG, QD
     Route: 048
     Dates: start: 20211014
  2. AUBAGIO [Suspect]
     Active Substance: TERIFLUNOMIDE
     Indication: Multiple sclerosis
     Dosage: 1 DF (TABLET 14 MG), QD
     Route: 048
     Dates: start: 20211112
  3. POLYETHYLENE GLYCOLS [Concomitant]
     Active Substance: POLYETHYLENE GLYCOLS
  4. SIMVASTATIN [Concomitant]
     Active Substance: SIMVASTATIN
  5. ASPIRIN [Concomitant]
     Active Substance: ASPIRIN
  6. NYSTATIN [Concomitant]
     Active Substance: NYSTATIN
  7. VITAMIN D NOS [Concomitant]
     Active Substance: VITAMIN D NOS
  8. BETASERON [Concomitant]
     Active Substance: INTERFERON BETA-1B
  9. VESICARE [Concomitant]
     Active Substance: SOLIFENACIN SUCCINATE
  10. CLONAZEPAM [Concomitant]
     Active Substance: CLONAZEPAM
  11. CITALOPRAM HYDROBROMIDE [Concomitant]
     Active Substance: CITALOPRAM HYDROBROMIDE
  12. ACETAMINOPHEN\HYDROCODONE [Concomitant]
     Active Substance: ACETAMINOPHEN\HYDROCODONE
  13. FLUVIRIN [INFLUENZA VACCINE INACT SAG 3V] [Concomitant]
  14. ZOCOR [Concomitant]
     Active Substance: SIMVASTATIN
  15. AMANTADINE HYDROCHLORIDE [Concomitant]
     Active Substance: AMANTADINE HYDROCHLORIDE

REACTIONS (3)
  - Poor quality sleep [Unknown]
  - Hepatic enzyme increased [Unknown]
  - Product dose omission issue [Unknown]
